FAERS Safety Report 21760960 (Version 1)
Quarter: 2022Q4

REPORT INFORMATION
  Report Type: Spontaneous
  Country: US (occurrence: None)
  Receive Date: 20221220
  Receipt Date: 20221220
  Transmission Date: 20230113
  Serious: Yes (Death)
  Sender: FDA-Public Use
  Company Number: None

PATIENT
  Age: 79 Year
  Sex: Female

DRUGS (1)
  1. OPSUMIT [Suspect]
     Active Substance: MACITENTAN
     Indication: Pulmonary hypertension
     Dosage: 10MG QQ ORAL?
     Route: 048
     Dates: start: 20151207, end: 20221112

REACTIONS (1)
  - Death [None]

NARRATIVE: CASE EVENT DATE: 20221112
